FAERS Safety Report 12914720 (Version 1)
Quarter: 2016Q4

REPORT INFORMATION
  Report Type: Spontaneous
  Country: US (occurrence: US)
  Receive Date: 20161106
  Receipt Date: 20161106
  Transmission Date: 20170207
  Serious: No
  Sender: FDA-Public Use
  Company Number: US-RELYPSA-RLY2016002050

PATIENT
  Sex: Female

DRUGS (10)
  1. GABAPENTIN. [Concomitant]
     Active Substance: GABAPENTIN
  2. VITAMIN D                          /00107901/ [Concomitant]
     Active Substance: ERGOCALCIFEROL
  3. LANTUS [Concomitant]
     Active Substance: INSULIN GLARGINE
  4. VELTASSA [Suspect]
     Active Substance: PATIROMER
     Dosage: 8.4 G THREE TIMES WEEKLY
     Route: 048
     Dates: start: 20160621
  5. MIRTAZAPINE. [Concomitant]
     Active Substance: MIRTAZAPINE
  6. PRENATAL                           /00231801/ [Concomitant]
     Active Substance: VITAMINS
  7. VELTASSA [Suspect]
     Active Substance: PATIROMER
     Indication: HYPERKALAEMIA
     Dosage: 8.4 G, THREE TIMES WEEKLY
     Route: 048
     Dates: start: 20160621
  8. TRAMADOL. [Concomitant]
     Active Substance: TRAMADOL
  9. ALPRAZOLAM. [Concomitant]
     Active Substance: ALPRAZOLAM
  10. VICODIN [Concomitant]
     Active Substance: ACETAMINOPHEN\HYDROCODONE BITARTRATE

REACTIONS (2)
  - Off label use [Unknown]
  - Diarrhoea [Unknown]

NARRATIVE: CASE EVENT DATE: 2016
